FAERS Safety Report 6112022-3 (Version None)
Quarter: 2009Q1

REPORT INFORMATION
  Report Type: 
  Country: None (occurrence: None)
  Receive Date: 20090310
  Receipt Date: 20090302
  Transmission Date: 20090719
  Serious: Yes (Hospitalization, Other)
  Sender: FDA-Public Use
  Company Number: ZYD-09-AE-003

PATIENT
  Age: 56 Year
  Sex: Male
  Weight: 115.2 kg

DRUGS (7)
  1. RIBAVIRIN [Suspect]
     Indication: HEPATITIS
     Dosage: 1200MG, DAILY, ORAL
     Route: 048
     Dates: start: 20080619
  2. RIBAVIRIN [Suspect]
     Indication: HEPATITIS C VIRUS TEST
     Dosage: 1200MG, DAILY, ORAL
     Route: 048
     Dates: start: 20080619
  3. PEG-INTERFERON ALPHA 2A (RO 25-8310) [Suspect]
     Indication: HEPATITIS
     Dosage: 90UG, 1 X WEEK,
  4. PEG-INTERFERON ALPHA 2A (RO 25-8310) [Suspect]
     Indication: HEPATITIS C VIRUS TEST
     Dosage: 90UG, 1 X WEEK,
  5. PEG-INTERFERON ALFA 2A (RO 25-8310) [Suspect]
     Indication: HEPATITIS
     Dosage: 180UG, WEEKLY,
     Dates: start: 20080619
  6. PEG-INTERFERON ALFA 2A (RO 25-8310) [Suspect]
     Indication: HEPATITIS C VIRUS TEST
     Dosage: 180UG, WEEKLY,
     Dates: start: 20080619
  7. NEURONTIN [Concomitant]

REACTIONS (6)
  - GAIT DISTURBANCE [None]
  - HAEMOGLOBIN DECREASED [None]
  - HEPATIC CYST [None]
  - HEPATIC NEOPLASM MALIGNANT [None]
  - RESPIRATORY TRACT INFECTION [None]
  - THROMBOCYTOPENIA [None]
